FAERS Safety Report 5212019-1 (Version None)
Quarter: 2007Q1

REPORT INFORMATION
  Report Type: 
  Country: None (occurrence: None)
  Receive Date: 20070118
  Receipt Date: 20070111
  Transmission Date: 20070707
  Serious: Yes (Other)
  Sender: FDA-Public Use
  Company Number: US-AVENTIS-200710270US

PATIENT
  Sex: Female

DRUGS (9)
  1. LANTUS [Suspect]
     Dates: start: 20061101
  2. LANTUS [Suspect]
  3. LANTUS [Suspect]
  4. LANTUS [Suspect]
     Dates: start: 20070105
  5. OPTICLIK (INSULIN INJECTION PEN) [Suspect]
     Dates: start: 20061101
  6. METFORMIN [Concomitant]
  7. GLIPIZIDE [Concomitant]
  8. AVANDIA [Concomitant]
  9. SYNTHROID [Concomitant]
     Dosage: DOSE: UNK

REACTIONS (8)
  - BALANCE DISORDER [None]
  - BLOOD GLUCOSE INCREASED [None]
  - DRUG INEFFECTIVE [None]
  - EXCORIATION [None]
  - FALL [None]
  - HAEMORRHAGE [None]
  - LOSS OF CONSCIOUSNESS [None]
  - OEDEMA PERIPHERAL [None]
